FAERS Safety Report 9642389 (Version 1)
Quarter: 2013Q4

REPORT INFORMATION
  Report Type: Spontaneous
  Country: US (occurrence: US)
  Receive Date: 20131024
  Receipt Date: 20131024
  Transmission Date: 20140711
  Serious: Yes (Hospitalization, Other)
  Sender: FDA-Public Use
  Company Number: US-ROCHE-1291586

PATIENT
  Age: 86 Year
  Sex: Female

DRUGS (18)
  1. RITUXAN [Suspect]
     Indication: NON-HODGKIN^S LYMPHOMA
     Route: 042
     Dates: start: 20130930
  2. NAPROSYN [Suspect]
     Indication: PRODUCT USED FOR UNKNOWN INDICATION
     Route: 065
  3. AMLODIPINE [Concomitant]
     Route: 048
  4. ASPIRIN [Concomitant]
     Route: 048
  5. ATENOLOL [Concomitant]
     Dosage: AT BEDTIME
     Route: 048
  6. VITAMIN D2 [Concomitant]
     Dosage: UNITS MONDAY AND THURSDAY
     Route: 048
  7. NEXIUM [Concomitant]
     Route: 048
  8. SYNTHROID [Concomitant]
     Route: 048
  9. COZAAR [Concomitant]
     Route: 048
  10. MAG-OX [Concomitant]
     Route: 048
  11. VESICARE [Concomitant]
     Route: 048
  12. DULERA [Concomitant]
     Dosage: 2 PUFFS: 200MCG-5MCG
     Route: 055
  13. PROAIR (UNITED STATES) [Concomitant]
     Indication: WHEEZING
     Dosage: 2 PUFFS EVERY 4 HOURS AS NEEDED
     Route: 055
  14. MOTRIN [Concomitant]
     Indication: PAIN
     Dosage: 1 TAB DAILY AS NEEDED FOR PAIN
     Route: 048
  15. TRAMADOL [Concomitant]
     Indication: PAIN
     Dosage: 1 TABLET AT BEDTIME AS NEEDED FOR PAIN
     Route: 048
  16. HYDROCORTISONE [Concomitant]
     Indication: PREMEDICATION
     Route: 065
     Dates: start: 201309
  17. BENADRYL (UNITED STATES) [Concomitant]
     Indication: PREMEDICATION
     Route: 065
     Dates: start: 201309
  18. BENADRYL (UNITED STATES) [Concomitant]
     Route: 065
     Dates: start: 201310

REACTIONS (8)
  - Headache [Recovered/Resolved]
  - Oedema peripheral [Recovered/Resolved]
  - Musculoskeletal stiffness [Recovered/Resolved]
  - Swelling [Recovered/Resolved]
  - Oedema [Recovered/Resolved]
  - Bone neoplasm [Unknown]
  - Arthralgia [Recovered/Resolved]
  - Hypersensitivity [Unknown]
